FAERS Safety Report 6750197-3 (Version None)
Quarter: 2010Q2

REPORT INFORMATION
  Report Type: 
  Country: None (occurrence: None)
  Receive Date: 20100601
  Receipt Date: 20100520
  Transmission Date: 20101027
  Serious: Yes (Other)
  Sender: FDA-Public Use
  Company Number: US-PFIZER INC-2010058941

PATIENT
  Sex: Male

DRUGS (1)
  1. NEURONTIN [Suspect]
     Indication: GROIN PAIN
     Dosage: 400 MG, UNK
     Dates: start: 20040101

REACTIONS (6)
  - AGGRESSION [None]
  - ANXIETY [None]
  - BIPOLAR I DISORDER [None]
  - PSYCHOTIC DISORDER [None]
  - SEXUAL DYSFUNCTION [None]
  - SUICIDE ATTEMPT [None]
